FAERS Safety Report 6326835-6 (Version None)
Quarter: 2009Q3

REPORT INFORMATION
  Report Type: 
  Country: None (occurrence: None)
  Receive Date: 20090825
  Receipt Date: 20090820
  Transmission Date: 20100115
  Serious: Yes (Other)
  Sender: FDA-Public Use
  Company Number: US-ROCHE-651833

PATIENT
  Sex: Male
  Weight: 73.5 kg

DRUGS (1)
  1. CAPECITABINE [Suspect]
     Indication: COLON CANCER
     Dosage: DOSE: 3 TABLETS BID
     Route: 048
     Dates: start: 20090605, end: 20090812

REACTIONS (2)
  - MALIGNANT NEOPLASM PROGRESSION [None]
  - TUMOUR MARKER INCREASED [None]
